FAERS Safety Report 16442445 (Version 1)
Quarter: 2019Q2

REPORT INFORMATION
  Report Type: Report from Study
  Country: US (occurrence: US)
  Receive Date: 20190617
  Receipt Date: 20190617
  Transmission Date: 20190711
  Serious: No
  Sender: FDA-Public Use
  Company Number: PHEH2019US024718

PATIENT
  Sex: Female

DRUGS (2)
  1. METOPROLOL. [Concomitant]
     Active Substance: METOPROLOL
     Indication: PRODUCT USED FOR UNKNOWN INDICATION
     Route: 065
  2. ENTRESTO [Suspect]
     Active Substance: SACUBITRIL\VALSARTAN
     Indication: PRODUCT USED FOR UNKNOWN INDICATION
     Route: 065

REACTIONS (10)
  - Fall [Unknown]
  - Oedema [Unknown]
  - Gait disturbance [Unknown]
  - Joint injury [Unknown]
  - Head injury [Unknown]
  - Wrist fracture [Unknown]
  - Head titubation [Unknown]
  - Stress [Unknown]
  - Blood pressure increased [Unknown]
  - Hypoaesthesia [Unknown]
